FAERS Safety Report 10543315 (Version 1)
Quarter: 2014Q4

REPORT INFORMATION
  Report Type: Spontaneous
  Country: US (occurrence: None)
  Receive Date: 20141010
  Receipt Date: 20141010
  Transmission Date: 20150529
  Serious: Yes (Other)
  Sender: FDA-Public Use
  Company Number: 163-POMAL-14063849

PATIENT
  Age: 70 Year
  Sex: Female
  Weight: 75.7 kg

DRUGS (17)
  1. PERCOCET (OXYCOCET) [Concomitant]
  2. POTASSIUM (POTASSIUM) [Concomitant]
     Active Substance: POTASSIUM
  3. COUMADIN [Concomitant]
     Active Substance: WARFARIN SODIUM
  4. PREDNISONE (PREDNISONE) [Concomitant]
     Active Substance: PREDNISONE
  5. POMALYST [Suspect]
     Active Substance: POMALIDOMIDE
     Indication: PLASMA CELL MYELOMA
     Dosage: 21 IN 28 D
     Route: 048
     Dates: start: 20140520
  6. ADVAIR DISKUS (SERETIDE MITE) [Concomitant]
  7. NEXIUM [Concomitant]
     Active Substance: ESOMEPRAZOLE MAGNESIUM
  8. STOOL SOFTENER (DOCUSATE CALCIUM) [Concomitant]
  9. ZOFRAN (ONDANSETRON HYDROCHLORIDE) [Concomitant]
  10. DILAUDID [Concomitant]
     Active Substance: HYDROMORPHONE HYDROCHLORIDE
  11. FIBERCON (POLYCARBOPHIL CALCIUM) [Concomitant]
  12. ACYCLOVIR (ACICLOVIR) [Concomitant]
  13. ALLOPURINOL (ALLOPURINOL) [Concomitant]
     Active Substance: ALLOPURINOL
  14. DECADRON [Concomitant]
     Active Substance: DEXAMETHASONE
  15. ZOVIRAX (ACICLOVIR) [Concomitant]
     Active Substance: ACYCLOVIR
  16. ASPIRIN (ACETYLSALICYLIC ACID) [Concomitant]
     Active Substance: ASPIRIN
  17. LIDODERM [Concomitant]
     Active Substance: LIDOCAINE

REACTIONS (2)
  - Adverse drug reaction [None]
  - Dysphonia [None]

NARRATIVE: CASE EVENT DATE: 2014
